FAERS Safety Report 19205383 (Version 1)
Quarter: 2021Q2

REPORT INFORMATION
  Report Type: Report from Study
  Country: US (occurrence: US)
  Receive Date: 20210503
  Receipt Date: 20210503
  Transmission Date: 20210717
  Serious: Yes (Other)
  Sender: FDA-Public Use
  Company Number: US-PFIZER INC-2021146077

PATIENT
  Age: 66 Year
  Sex: Female

DRUGS (4)
  1. IBRANCE [Suspect]
     Active Substance: PALBOCICLIB
     Dosage: 75 MG, CYCLIC (1 CAPSULE DAILY, 21 DAYS, OFF FOR 7 DAY)
     Route: 048
     Dates: start: 20210205
  2. IBRANCE [Suspect]
     Active Substance: PALBOCICLIB
     Indication: BREAST CANCER METASTATIC
     Dosage: 125 MG
     Dates: start: 20201028
  3. IBRANCE [Suspect]
     Active Substance: PALBOCICLIB
     Dosage: 100 MG, CYCLIC (1 CAPSULE DAILY 21 DAYS, OFF FOR 7 DAY)
     Route: 048
     Dates: start: 20201210
  4. FULVESTRANT. [Concomitant]
     Active Substance: FULVESTRANT
     Dosage: UNK
     Dates: start: 20201210

REACTIONS (9)
  - Neutrophil count decreased [Unknown]
  - Joint instability [Recovered/Resolved]
  - Pain in extremity [Unknown]
  - Nausea [Unknown]
  - White blood cell count decreased [Unknown]
  - Incision site erythema [Unknown]
  - Neuropathy peripheral [Unknown]
  - Blood potassium decreased [Unknown]
  - Arthralgia [Unknown]

NARRATIVE: CASE EVENT DATE: 20210205
